FAERS Safety Report 22986987 (Version 2)
Quarter: 2024Q2

REPORT INFORMATION
  Report Type: Other
  Country: FR (occurrence: FR)
  Receive Date: 20230926
  Receipt Date: 20240425
  Transmission Date: 20240716
  Serious: Yes (Other)
  Sender: FDA-Public Use
  Company Number: None

PATIENT

DRUGS (3)
  1. RUXOLITINIB [Suspect]
     Active Substance: RUXOLITINIB
     Indication: Essential thrombocythaemia
     Dosage: 30 MG, QD
     Route: 048
     Dates: start: 20220920, end: 20230123
  2. RUXOLITINIB [Suspect]
     Active Substance: RUXOLITINIB
     Dosage: 40 MG, QD
     Route: 048
     Dates: start: 20230124, end: 20230904
  3. OFLOXACIN [Suspect]
     Active Substance: OFLOXACIN
     Indication: Pollakiuria
     Dosage: 400 MG, QD
     Route: 048
     Dates: start: 20221109, end: 20221116

REACTIONS (2)
  - Arthralgia [Not Recovered/Not Resolved]
  - Pain in extremity [Not Recovered/Not Resolved]

NARRATIVE: CASE EVENT DATE: 20230101
